FAERS Safety Report 12922050 (Version 1)
Quarter: 2016Q4

REPORT INFORMATION
  Report Type: Spontaneous
  Country: US (occurrence: US)
  Receive Date: 20161108
  Receipt Date: 20161108
  Transmission Date: 20170207
  Serious: No
  Sender: FDA-Public Use
  Company Number: US-ALK ABELLO INC-1059340

PATIENT
  Age: 12 Year
  Sex: Male
  Weight: 16.7 kg

DRUGS (3)
  1. CUSTOM MIX- CENTER AL WEED [Suspect]
     Active Substance: ALLERGENIC EXTRACT- WEEDS
     Route: 058
     Dates: start: 20160831, end: 20160831
  2. CUSTOM MIX - CENTER-AL GRASS [Suspect]
     Active Substance: ALLERGENIC EXTRACT- GRASS
     Route: 058
     Dates: start: 20160831, end: 20160831
  3. CUSTOM MIX- CENTER AL TREE [Suspect]
     Active Substance: ALLERGENIC EXTRACT- TREE
     Route: 058
     Dates: start: 20160831, end: 20160831

REACTIONS (3)
  - Pharyngeal oedema [Recovered/Resolved]
  - Cough [Recovered/Resolved]
  - Wheezing [Recovered/Resolved]

NARRATIVE: CASE EVENT DATE: 20160831
